FAERS Safety Report 7277509-9 (Version None)
Quarter: 2011Q1

REPORT INFORMATION
  Report Type: 
  Country: None (occurrence: None)
  Receive Date: 20110207
  Receipt Date: 20110124
  Transmission Date: 20110831
  Serious: Yes (Hospitalization, Other)
  Sender: FDA-Public Use
  Company Number: US-ELI_LILLY_AND_COMPANY-US201101006705

PATIENT
  Sex: Female

DRUGS (1)
  1. FORTEO [Suspect]
     Indication: OSTEOPOROSIS
     Dosage: 20 UG, DAILY (1/D)
     Dates: start: 20100501

REACTIONS (9)
  - RIB FRACTURE [None]
  - MUSCULOSKELETAL CHEST PAIN [None]
  - BACK PAIN [None]
  - FALL [None]
  - NON-CARDIAC CHEST PAIN [None]
  - ANAEMIA [None]
  - GRAND MAL CONVULSION [None]
  - METABOLIC ENCEPHALOPATHY [None]
  - SPINAL FRACTURE [None]
